FAERS Safety Report 15084249 (Version 1)
Quarter: 2018Q2

REPORT INFORMATION
  Report Type: Spontaneous
  Country: US (occurrence: US)
  Receive Date: 20180608
  Receipt Date: 20180608
  Transmission Date: 20180711
  Serious: Yes (Hospitalization)
  Sender: FDA-Public Use
  Company Number: None

PATIENT
  Age: 74 Year
  Sex: Female

DRUGS (9)
  1. OCALIVA [Suspect]
     Active Substance: OBETICHOLIC ACID
     Indication: PRIMARY BILIARY CHOLANGITIS
     Route: 048
     Dates: start: 20171205
  2. FLUDROCORT [Concomitant]
  3. SODIUM CHLOR [Concomitant]
     Active Substance: SODIUM CHLORIDE
  4. VENTOLIN HFA [Concomitant]
     Active Substance: ALBUTEROL SULFATE
  5. ATROVENT [Concomitant]
     Active Substance: IPRATROPIUM BROMIDE
  6. ALBUTEROL. [Concomitant]
     Active Substance: ALBUTEROL
  7. CENTRIM [Concomitant]
  8. EYE DROPS [Concomitant]
     Active Substance: UNSPECIFIED INGREDIENT
  9. URSODIOL. [Concomitant]
     Active Substance: URSODIOL

REACTIONS (5)
  - Hypotension [None]
  - Fall [None]
  - Loss of consciousness [None]
  - Blood sodium decreased [None]
  - Atrial fibrillation [None]

NARRATIVE: CASE EVENT DATE: 201804
